FAERS Safety Report 14170059 (Version 1)
Quarter: 2017Q4

REPORT INFORMATION
  Report Type: Spontaneous
  Country: US (occurrence: US)
  Receive Date: 20171108
  Receipt Date: 20171108
  Transmission Date: 20180321
  Serious: Yes (Other)
  Sender: FDA-Public Use
  Company Number: US-TEVA-821885USA

PATIENT
  Age: 32 Day
  Sex: Female
  Weight: 1.7 kg

DRUGS (2)
  1. ALPROSTADIL. [Suspect]
     Active Substance: ALPROSTADIL
     Indication: HEART DISEASE CONGENITAL
     Dosage: DOSE REDUCED TO APPROXIMATELY 0.007MICROG/KG/MINUTE
     Route: 050
  2. ALPROSTADIL. [Suspect]
     Active Substance: ALPROSTADIL
     Indication: HEART DISEASE CONGENITAL
     Dosage: 0.05 MICROG/KG/MIN
     Route: 050

REACTIONS (1)
  - Atrioventricular block [Recovered/Resolved]
